FAERS Safety Report 8875747 (Version 1)
Quarter: 2012Q4

REPORT INFORMATION
  Report Type: 
  Country: US (occurrence: US)
  Receive Date: 20121030
  Receipt Date: 20121030
  Transmission Date: 20130627
  Serious: Yes (Other)
  Sender: FDA-Public Use
  Company Number: PHEH2012US021190

PATIENT
  Age: 47 Year
  Sex: Female

DRUGS (3)
  1. RITALIN [Suspect]
     Indication: ATTENTION DEFICIT/HYPERACTIVITY DISORDER
     Dosage: 20 mg QAM + 10 mg BID
  2. VILAZODONE HYDROCHLORIDE [Interacting]
     Indication: DEPRESSION
     Dosage: 40 mg daily
     Dates: start: 20121010, end: 20121011
  3. ABILIFY [Concomitant]

REACTIONS (4)
  - Chest pain [Unknown]
  - Hypertension [Unknown]
  - Tachycardia [Unknown]
  - Drug interaction [Unknown]
